FAERS Safety Report 8799328 (Version 1)
Quarter: 2012Q4

REPORT INFORMATION
  Report Type: 
  Country: HU (occurrence: HU)
  Receive Date: 20120919
  Receipt Date: 20120919
  Transmission Date: 20130627
  Serious: Yes (Other)
  Sender: FDA-Public Use
  Company Number: HU-PFIZER INC-2012229203

PATIENT
  Age: 54 Year
  Sex: Female
  Weight: 78 kg

DRUGS (11)
  1. LYRICA [Suspect]
     Indication: NEURALGIA
     Dosage: 75 mg, 1x/day
     Dates: start: 201203
  2. LYRICA [Suspect]
     Dosage: 150 mg, 1x/day
     Dates: end: 201203
  3. MERCKFORMIN [Concomitant]
     Dosage: UNK
     Dates: start: 2003
  4. MODUXIN [Concomitant]
     Dosage: UNK
     Dates: start: 201103
  5. ROXERA [Concomitant]
     Dosage: UNK
     Dates: start: 201103
  6. FRONTIN [Concomitant]
     Dosage: UNK
     Dates: start: 200803
  7. VALDOXAN [Concomitant]
     Dosage: UNK
     Dates: start: 201103
  8. DICETEL [Concomitant]
     Dosage: UNK
     Dates: start: 2009
  9. PANTOPRAZOL [Concomitant]
     Dosage: UNK
     Dates: start: 2009
  10. NIDOL [Concomitant]
     Dosage: UNK
     Dates: start: 2007
  11. PARACETAMOL [Concomitant]
     Dosage: UNK
     Dates: start: 2007

REACTIONS (3)
  - Abdominal pain upper [Recovered/Resolved]
  - Hepatomegaly [Recovered/Resolved]
  - Abdominal pain [Recovered/Resolved]
